FAERS Safety Report 25808238 (Version 4)
Quarter: 2025Q4

REPORT INFORMATION
  Report Type: Report from Study
  Country: KR (occurrence: KR)
  Receive Date: 20250916
  Receipt Date: 20251126
  Transmission Date: 20260117
  Serious: No
  Sender: ASTELLAS
  Company Number: KR-ASTELLAS-2024-AER-028254

PATIENT
  Age: 68 Year
  Sex: Female
  Weight: 50 kg

DRUGS (33)
  1. PADCEV [Suspect]
     Active Substance: ENFORTUMAB VEDOTIN-EJFV
     Indication: Transitional cell carcinoma metastatic
     Dosage: 1.2 MG/KG, CYCLE 1
     Route: 042
     Dates: start: 20231220
  2. PADCEV [Suspect]
     Active Substance: ENFORTUMAB VEDOTIN-EJFV
     Dosage: 1.25 MG/KG, CYCLE 1
     Route: 042
     Dates: start: 20231227
  3. PADCEV [Suspect]
     Active Substance: ENFORTUMAB VEDOTIN-EJFV
     Dosage: 1.25 MG/KG, CYCLE 1
     Route: 042
     Dates: start: 20240103
  4. PADCEV [Suspect]
     Active Substance: ENFORTUMAB VEDOTIN-EJFV
     Dosage: 1.25 MG/KG, CYCLE 2
     Route: 042
     Dates: start: 20240117
  5. PADCEV [Suspect]
     Active Substance: ENFORTUMAB VEDOTIN-EJFV
     Dosage: 1.25 MG/KG, CYCLE 2
     Route: 042
     Dates: start: 20240123
  6. PADCEV [Suspect]
     Active Substance: ENFORTUMAB VEDOTIN-EJFV
     Dosage: 1.25 MG/KG, CYCLE 2
     Route: 042
     Dates: start: 20240131
  7. PADCEV [Suspect]
     Active Substance: ENFORTUMAB VEDOTIN-EJFV
     Dosage: 1.25 MG/KG, CYCLE 3
     Route: 042
     Dates: start: 20240214
  8. PADCEV [Suspect]
     Active Substance: ENFORTUMAB VEDOTIN-EJFV
     Dosage: 1 MG/KG, CYCLE 3, INVESTIGATOR JUDGMENT
     Route: 042
     Dates: start: 20240221
  9. PADCEV [Suspect]
     Active Substance: ENFORTUMAB VEDOTIN-EJFV
     Dosage: 1 MG/KG, CYCLE 3
     Route: 042
     Dates: start: 20240228
  10. PADCEV [Suspect]
     Active Substance: ENFORTUMAB VEDOTIN-EJFV
     Dosage: 1 MG/KG, CYCLE 4
     Route: 042
     Dates: start: 20240311
  11. PADCEV [Suspect]
     Active Substance: ENFORTUMAB VEDOTIN-EJFV
     Dosage: 1 MG/KG, CYCLE 4
     Route: 042
     Dates: start: 20240319
  12. PADCEV [Suspect]
     Active Substance: ENFORTUMAB VEDOTIN-EJFV
     Dosage: 1 MG/KG, CYCLE 4
     Route: 042
     Dates: start: 20240325
  13. PADCEV [Suspect]
     Active Substance: ENFORTUMAB VEDOTIN-EJFV
     Dosage: 1 MG/KG, CYCLE 5
     Route: 042
     Dates: start: 20240408
  14. PADCEV [Suspect]
     Active Substance: ENFORTUMAB VEDOTIN-EJFV
     Dosage: 1 MG/KG, CYCLE 5
     Route: 042
     Dates: start: 20240415
  15. PADCEV [Suspect]
     Active Substance: ENFORTUMAB VEDOTIN-EJFV
     Dosage: 1 MG/KG, CYCLE 5
     Route: 042
     Dates: start: 20240424
  16. PADCEV [Suspect]
     Active Substance: ENFORTUMAB VEDOTIN-EJFV
     Dosage: 0.8 MG/KG, CYCLE 6, INVESTIGATOR JUDGMENT
     Route: 042
     Dates: start: 20240508
  17. PADCEV [Suspect]
     Active Substance: ENFORTUMAB VEDOTIN-EJFV
     Dosage: 0.75 MG/KG, CYCLE 6
     Route: 042
     Dates: start: 20240513
  18. PADCEV [Suspect]
     Active Substance: ENFORTUMAB VEDOTIN-EJFV
     Dosage: 0.75 MG/KG, CYCLE 6
     Route: 042
     Dates: start: 20240520
  19. PADCEV [Suspect]
     Active Substance: ENFORTUMAB VEDOTIN-EJFV
     Dosage: 0.75 MG/KG, CYCLE 7
     Route: 042
     Dates: start: 20240603
  20. PADCEV [Suspect]
     Active Substance: ENFORTUMAB VEDOTIN-EJFV
     Dosage: 0.75 MG/KG, CYCLE 7
     Route: 042
     Dates: start: 20240610
  21. PADCEV [Suspect]
     Active Substance: ENFORTUMAB VEDOTIN-EJFV
     Dosage: 0.75 MG/KG, CYCLE 7
     Route: 042
     Dates: start: 20240617
  22. PADCEV [Suspect]
     Active Substance: ENFORTUMAB VEDOTIN-EJFV
     Dosage: 0.6 MG/KG, CYCLE 8, CONSTIPATION
     Route: 042
     Dates: start: 20240708
  23. PADCEV [Suspect]
     Active Substance: ENFORTUMAB VEDOTIN-EJFV
     Dosage: 0.5 MG/KG, CYCLE 8
     Route: 042
     Dates: start: 20240715
  24. PADCEV [Suspect]
     Active Substance: ENFORTUMAB VEDOTIN-EJFV
     Dosage: 0.5 MG/KG, CYCLE 9
     Route: 042
     Dates: start: 20240729
  25. PADCEV [Suspect]
     Active Substance: ENFORTUMAB VEDOTIN-EJFV
     Dosage: 0.5 MG/KG, CYCLE 9
     Route: 042
     Dates: start: 20240805
  26. PADCEV [Suspect]
     Active Substance: ENFORTUMAB VEDOTIN-EJFV
     Dosage: 0.5 MG/KG, CYCLE 9
     Route: 042
     Dates: start: 20240812
  27. PADCEV [Suspect]
     Active Substance: ENFORTUMAB VEDOTIN-EJFV
     Dosage: 0.5 MG/KG, CYCLE 10
     Route: 042
     Dates: start: 20240828
  28. PADCEV [Suspect]
     Active Substance: ENFORTUMAB VEDOTIN-EJFV
     Dosage: 0.5 MG/KG, CYCLE 10
     Route: 042
     Dates: start: 20240902
  29. PADCEV [Suspect]
     Active Substance: ENFORTUMAB VEDOTIN-EJFV
     Dosage: 0.5 MG/KG, CYCLE 10
     Route: 042
     Dates: start: 20240909
  30. PADCEV [Suspect]
     Active Substance: ENFORTUMAB VEDOTIN-EJFV
     Dosage: 0.5 MG/KG, CYCLE 11
     Route: 042
     Dates: start: 20240923
  31. PADCEV [Suspect]
     Active Substance: ENFORTUMAB VEDOTIN-EJFV
     Dosage: 0.5 MG/KG, CYCLE 11
     Route: 042
     Dates: start: 20241007
  32. PADCEV [Suspect]
     Active Substance: ENFORTUMAB VEDOTIN-EJFV
     Dosage: 0.5 MG/KG, CYCLE 11
     Route: 042
     Dates: start: 20241021, end: 20241021
  33. PADCEV [Suspect]
     Active Substance: ENFORTUMAB VEDOTIN-EJFV
     Dosage: 0.75 MG/KG, CYCLE 8
     Route: 042
     Dates: start: 20240701

REACTIONS (4)
  - Lung infiltration [Not Recovered/Not Resolved]
  - Haematocrit decreased [Recovering/Resolving]
  - Haemoglobin decreased [Recovering/Resolving]
  - Constipation [Not Recovered/Not Resolved]

NARRATIVE: CASE EVENT DATE: 20240325
